FAERS Safety Report 15349036 (Version 3)
Quarter: 2018Q3

REPORT INFORMATION
  Report Type: Report from Study
  Country: US (occurrence: US)
  Receive Date: 20180904
  Receipt Date: 20180928
  Transmission Date: 20181010
  Serious: Yes (Other)
  Sender: FDA-Public Use
  Company Number: US-PUMA BIOTECHNOLOGY, LTD.-2018US008506

PATIENT

DRUGS (5)
  1. URSODIOL. [Concomitant]
     Active Substance: URSODIOL
     Indication: PRODUCT USED FOR UNKNOWN INDICATION
  2. FOSAMAX [Concomitant]
     Active Substance: ALENDRONATE SODIUM
     Indication: PRODUCT USED FOR UNKNOWN INDICATION
  3. ANASTROZOLE. [Concomitant]
     Active Substance: ANASTROZOLE
     Indication: PRODUCT USED FOR UNKNOWN INDICATION
  4. LOPERAMIDE [Concomitant]
     Active Substance: LOPERAMIDE
     Indication: PRODUCT USED FOR UNKNOWN INDICATION
  5. NERLYNX [Suspect]
     Active Substance: NERATINIB
     Indication: BREAST CANCER FEMALE
     Dosage: 240 MG (6 TABLETS), DAILY
     Route: 048
     Dates: start: 20180524

REACTIONS (19)
  - Aspartate aminotransferase increased [Unknown]
  - Musculoskeletal stiffness [Unknown]
  - Blood pressure increased [Unknown]
  - Alanine aminotransferase increased [Unknown]
  - Blood glucose increased [Unknown]
  - Monocyte count increased [Unknown]
  - Glomerular filtration rate decreased [Unknown]
  - Red blood cell count decreased [Unknown]
  - Haemoglobin decreased [Unknown]
  - Haematocrit decreased [Unknown]
  - Arthralgia [Recovering/Resolving]
  - Blood creatinine increased [Unknown]
  - Blood urea increased [Unknown]
  - Neutrophil count increased [Unknown]
  - Eosinophil count increased [Unknown]
  - Urinary tract infection [Unknown]
  - Diarrhoea [Unknown]
  - Biliary cirrhosis [Unknown]
  - Lymphocyte count decreased [Unknown]

NARRATIVE: CASE EVENT DATE: 2018
